FAERS Safety Report 7519165-8 (Version None)
Quarter: 2011Q2

REPORT INFORMATION
  Report Type: 
  Country: None (occurrence: None)
  Receive Date: 20110602
  Receipt Date: 20110523
  Transmission Date: 20111010
  Serious: Yes (Hospitalization)
  Sender: FDA-Public Use
  Company Number: FR-ROCHE-779491

PATIENT
  Sex: Male
  Weight: 75 kg

DRUGS (1)
  1. PEGINTERFERON ALFA-2A [Suspect]
     Route: 058

REACTIONS (1)
  - APPENDICECTOMY [None]
